FAERS Safety Report 6570857-7 (Version None)
Quarter: 2010Q1

REPORT INFORMATION
  Report Type: 
  Country: None (occurrence: None)
  Receive Date: 20100204
  Receipt Date: 20100128
  Transmission Date: 20100710
  Serious: Yes (Hospitalization)
  Sender: FDA-Public Use
  Company Number: US-NAPPMUNDI-USA-2009-0041293

PATIENT
  Sex: Male

DRUGS (5)
  1. SENOKOT [Suspect]
     Indication: CONSTIPATION
     Dosage: 2 TABLET, NOCTE
     Route: 048
     Dates: start: 20091130, end: 20091202
  2. FENTANYL [Concomitant]
     Indication: PAIN
     Dosage: 25 MCG, Q1H
     Route: 062
     Dates: start: 20091120
  3. OXYCODONE HCL [Concomitant]
     Indication: PAIN
     Dosage: UNK
     Dates: start: 20091120
  4. ADVAIR DISKUS 100/50 [Concomitant]
     Indication: CHRONIC OBSTRUCTIVE PULMONARY DISEASE
     Dosage: UNK
  5. METOPROLOL TARTRATE [Concomitant]
     Indication: HYPERTENSION
     Dosage: 50 MG, BID

REACTIONS (4)
  - DIARRHOEA [None]
  - DIARRHOEA HAEMORRHAGIC [None]
  - GASTROINTESTINAL INFLAMMATION [None]
  - VOMITING [None]
